FAERS Safety Report 9300396 (Version 1)
Quarter: 2013Q2

REPORT INFORMATION
  Report Type: Spontaneous
  Country: JP (occurrence: JP)
  Receive Date: 20130521
  Receipt Date: 20130521
  Transmission Date: 20140414
  Serious: Yes (Other)
  Sender: FDA-Public Use
  Company Number: JP-AMGEN-JPNSP2013023419

PATIENT
  Age: 75 Year
  Sex: Male

DRUGS (4)
  1. ARANESP [Suspect]
     Indication: NEPHROGENIC ANAEMIA
     Dosage: 60 MUG, 1X/WEEK
     Route: 040
  2. ARANESP [Suspect]
     Dosage: 120 MUG, 1X/WEEK
     Route: 040
  3. MIRCERA [Suspect]
     Dosage: 150 MUG, 1X/4WEEKS
     Route: 042
  4. MIRCERA [Suspect]
     Dosage: 100 MUG, 1X/4WEEKS
     Route: 042

REACTIONS (1)
  - Aplasia pure red cell [Not Recovered/Not Resolved]
